FAERS Safety Report 8306934-X (Version None)
Quarter: 2012Q2

REPORT INFORMATION
  Report Type: 
  Country: None (occurrence: None)
  Receive Date: 20120424
  Receipt Date: 20120417
  Transmission Date: 20120825
  Serious: Yes (Death)
  Sender: FDA-Public Use
  Company Number: US-CELGENEUS-163-21880-08060190

PATIENT
  Weight: 81.7 kg

DRUGS (3)
  1. REVLIMID [Suspect]
     Indication: AMYLOIDOSIS
     Dosage: 10 MILLIGRAM
     Route: 048
     Dates: start: 20071214, end: 20080527
  2. DEXAMETHASONE [Suspect]
     Indication: AMYLOIDOSIS
     Dosage: 10 MILLIGRAM
     Route: 065
     Dates: start: 20071214, end: 20080527
  3. CYCLOPHOSPHAMIDE [Suspect]
     Indication: AMYLOIDOSIS
     Dosage: 400 MILLIGRAM
     Route: 065
     Dates: start: 20071214, end: 20080527

REACTIONS (3)
  - CARDIAC AMYLOIDOSIS [None]
  - DISEASE PROGRESSION [None]
  - VENTRICULAR ARRHYTHMIA [None]
